FAERS Safety Report 5026487-1 (Version None)
Quarter: 2006Q2

REPORT INFORMATION
  Report Type: 
  Country: None (occurrence: None)
  Receive Date: 20060427
  Receipt Date: 20051103
  Transmission Date: 20061013
  Serious: Yes (Other)
  Sender: FDA-Public Use
  Company Number: 2005150244

PATIENT
  Age: 15 Year
  Sex: Female
  Weight: 83.9154 kg

DRUGS (1)
  1. GENOTROPIN [Suspect]
     Indication: HYPOPITUITARISM
     Dosage: 3.4 MG (3.4 MG, DAILY INTERVAL:EVERY DAY),SUBCUTANEOUS
     Route: 058
     Dates: start: 20050927, end: 20051025

REACTIONS (6)
  - FEELING ABNORMAL [None]
  - HEADACHE [None]
  - MASS [None]
  - SWELLING [None]
  - VOMITING [None]
  - WEIGHT DECREASED [None]
